FAERS Safety Report 12654173 (Version 1)
Quarter: 2016Q3

REPORT INFORMATION
  Report Type: Spontaneous
  Country: US (occurrence: None)
  Receive Date: 20160815
  Receipt Date: 20160815
  Transmission Date: 20161109
  Serious: Yes (Hospitalization, Other)
  Sender: FDA-Public Use
  Company Number: None

PATIENT
  Sex: Female

DRUGS (1)
  1. AZITHROMYCIN ANHYDROUS. [Suspect]
     Active Substance: AZITHROMYCIN ANHYDROUS
     Indication: ALVEOLAR OSTEITIS
     Dates: start: 20160411, end: 20160423

REACTIONS (7)
  - Malaise [None]
  - Cholelithiasis [None]
  - Tinnitus [None]
  - Pruritus generalised [None]
  - Dyspnoea [None]
  - Hyperhidrosis [None]
  - Headache [None]

NARRATIVE: CASE EVENT DATE: 20160423
